FAERS Safety Report 9667780 (Version 1)
Quarter: 2013Q4

REPORT INFORMATION
  Report Type: Spontaneous
  Country: US (occurrence: None)
  Receive Date: 20131101
  Receipt Date: 20131101
  Transmission Date: 20140711
  Serious: Yes (Other)
  Sender: FDA-Public Use
  Company Number: 2013-003351

PATIENT
  Sex: Female

DRUGS (2)
  1. ACTONEL (RISEDRONATE SODIUM) TABLET, UNKMG [Suspect]
     Indication: OSTEOPOROSIS
     Dosage: DOSAGE/FREQUENCY UNKNOWN
     Route: 048
  2. BONIVA (IBANDRONATE SODIUM) [Suspect]
     Indication: OSTEOPOROSIS
     Dosage: DOSAGE/ FREQUENCY UNKNOWN, UNKNOWN

REACTIONS (5)
  - Pathological fracture [None]
  - Bone disorder [None]
  - Stress fracture [None]
  - Pain [None]
  - Low turnover osteopathy [None]
